FAERS Safety Report 9050489 (Version 1)
Quarter: 2013Q1

REPORT INFORMATION
  Report Type: Spontaneous
  Country: US (occurrence: US)
  Receive Date: 20130205
  Receipt Date: 20130205
  Transmission Date: 20140127
  Serious: No
  Sender: FDA-Public Use
  Company Number: US-TEVA-384387USA

PATIENT
  Sex: Male
  Weight: 40.41 kg

DRUGS (1)
  1. ACTIQ [Suspect]
     Indication: CANCER PAIN

REACTIONS (3)
  - Tooth disorder [Recovered/Resolved]
  - Tooth extraction [Recovered/Resolved]
  - Malnutrition [Not Recovered/Not Resolved]
